FAERS Safety Report 7239331-9 (Version None)
Quarter: 2011Q1

REPORT INFORMATION
  Report Type: 
  Country: None (occurrence: None)
  Receive Date: 20110113
  Receipt Date: 20110104
  Transmission Date: 20110831
  Serious: Yes (Other)
  Sender: FDA-Public Use
  Company Number: B0486945A

PATIENT
  Age: 19 Year
  Sex: Female

DRUGS (2)
  1. PHENOXYMETHYL PENICILLIN [Suspect]
     Indication: UPPER RESPIRATORY TRACT INFECTION
  2. ORAL CONTRACEPTIVE [Concomitant]

REACTIONS (1)
  - TOXIC EPIDERMAL NECROLYSIS [None]
